FAERS Safety Report 5965753-X (Version None)
Quarter: 2008Q4

REPORT INFORMATION
  Report Type: 
  Country: None (occurrence: None)
  Receive Date: 20081125
  Receipt Date: 20081121
  Transmission Date: 20090506
  Serious: Yes (Other)
  Sender: FDA-Public Use
  Company Number: B0547333A

PATIENT
  Sex: Male

DRUGS (3)
  1. VALTREX [Suspect]
     Indication: DRUG USE FOR UNKNOWN INDICATION
     Dosage: 2000MG TWICE PER DAY
     Route: 048
     Dates: start: 20081115, end: 20081116
  2. ACE INHIBITOR [Concomitant]
  3. DIALYSIS [Concomitant]

REACTIONS (3)
  - ALTERED STATE OF CONSCIOUSNESS [None]
  - CONVULSION [None]
  - OVERDOSE [None]
